FAERS Safety Report 18584230 (Version 1)
Quarter: 2020Q4

REPORT INFORMATION
  Report Type: Other
  Country: RO (occurrence: RO)
  Receive Date: 20201207
  Receipt Date: 20201207
  Transmission Date: 20210114
  Serious: Yes (Other)
  Sender: FDA-Public Use
  Company Number: RO-ROCHE-2644302

PATIENT
  Sex: Female
  Weight: 75 kg

DRUGS (2)
  1. ROACTEMRA [Suspect]
     Active Substance: TOCILIZUMAB
     Indication: RHEUMATIC DISORDER
     Route: 058
  2. LEFLUNOMIDE. [Suspect]
     Active Substance: LEFLUNOMIDE
     Indication: PRODUCT USED FOR UNKNOWN INDICATION
     Route: 065

REACTIONS (7)
  - Hip arthroplasty [Unknown]
  - Illness [Unknown]
  - Weight increased [Unknown]
  - Parkinson^s disease [Unknown]
  - Gait inability [Unknown]
  - Emotional distress [Unknown]
  - Chondropathy [Unknown]
